FAERS Safety Report 18248489 (Version 1)
Quarter: 2020Q3

REPORT INFORMATION
  Report Type: Spontaneous
  Country: IE (occurrence: IE)
  Receive Date: 20200909
  Receipt Date: 20200909
  Transmission Date: 20201103
  Serious: Yes (Other)
  Sender: FDA-Public Use
  Company Number: IE-JNJFOC-20200841270

PATIENT
  Age: 64 Year
  Sex: Female

DRUGS (4)
  1. NEXIUM 20 MG GASTRO?RESISTANT TABLETS [Concomitant]
     Indication: PROPHYLAXIS
     Route: 048
  2. INVOKANA [Suspect]
     Active Substance: CANAGLIFLOZIN
     Indication: DIABETES MELLITUS
     Route: 048
     Dates: start: 202007, end: 20200809
  3. METFORMIN (GENERIC) [Concomitant]
     Active Substance: METFORMIN HYDROCHLORIDE
     Indication: DIABETES MELLITUS
     Route: 048
  4. NEXIUM 20 MG GASTRO?RESISTANT TABLETS [Concomitant]
     Dosage: 20 MG INCREASED TO 40 MG ONE MONTH AGO
     Route: 048

REACTIONS (7)
  - Secretion discharge [Not Recovered/Not Resolved]
  - Pruritus genital [Not Recovered/Not Resolved]
  - Urine odour abnormal [Not Recovered/Not Resolved]
  - Burning sensation [Not Recovered/Not Resolved]
  - Malaise [Not Recovered/Not Resolved]
  - Micturition urgency [Not Recovered/Not Resolved]
  - Abdominal pain lower [Not Recovered/Not Resolved]

NARRATIVE: CASE EVENT DATE: 202007
